FAERS Safety Report 17224846 (Version 1)
Quarter: 2020Q1

REPORT INFORMATION
  Report Type: Report from Study
  Country: MX (occurrence: MX)
  Receive Date: 20200102
  Receipt Date: 20200102
  Transmission Date: 20200409
  Serious: Yes (Other)
  Sender: FDA-Public Use
  Company Number: PHHY2018MX100356

PATIENT
  Sex: Female
  Weight: 70 kg

DRUGS (1)
  1. COSENTYX [Suspect]
     Active Substance: SECUKINUMAB
     Indication: SPINAL OSTEOARTHRITIS
     Dosage: 300 MG, QMO
     Route: 058
     Dates: end: 201902

REACTIONS (7)
  - Decreased immune responsiveness [Unknown]
  - Respiratory tract infection [Recovered/Resolved]
  - Hair disorder [Unknown]
  - Skin infection [Unknown]
  - Folliculitis [Unknown]
  - Urinary tract infection [Recovered/Resolved]
  - Product use in unapproved indication [Unknown]

NARRATIVE: CASE EVENT DATE: 2018
